FAERS Safety Report 14087346 (Version 1)
Quarter: 2017Q4

REPORT INFORMATION
  Report Type: Spontaneous
  Country: FR (occurrence: FR)
  Receive Date: 20171013
  Receipt Date: 20171013
  Transmission Date: 20180321
  Serious: Yes (Hospitalization)
  Sender: FDA-Public Use
  Company Number: FR-SA-2017SA174205

PATIENT
  Age: 73 Year
  Sex: Male
  Weight: 57 kg

DRUGS (5)
  1. JEVTANA [Suspect]
     Active Substance: CABAZITAXEL
     Indication: PROSTATE CANCER
     Route: 042
     Dates: start: 20170113, end: 20170113
  2. INEXIUM [Concomitant]
     Active Substance: ESOMEPRAZOLE
     Dosage: START DATE: 26-SEP
     Route: 048
  3. JEVTANA [Suspect]
     Active Substance: CABAZITAXEL
     Indication: PROSTATE CANCER
     Route: 042
     Dates: start: 20170825, end: 20170825
  4. TRAMADOL. [Concomitant]
     Active Substance: TRAMADOL
     Dosage: START DATE: AUG
     Route: 065
     Dates: end: 201709
  5. SERESTA [Concomitant]
     Active Substance: OXAZEPAM
     Dosage: START DATE: 26-SEP
     Route: 048

REACTIONS (5)
  - Hepatomegaly [Unknown]
  - Jaundice [Unknown]
  - Vomiting [Unknown]
  - Asthenia [Unknown]
  - Abdominal pain [Unknown]

NARRATIVE: CASE EVENT DATE: 20170904
